FAERS Safety Report 25422121 (Version 1)
Quarter: 2025Q2

REPORT INFORMATION
  Report Type: Spontaneous
  Country: BR (occurrence: BR)
  Receive Date: 20250611
  Receipt Date: 20250611
  Transmission Date: 20250716
  Serious: Yes (Other)
  Sender: ACCORD
  Company Number: BR-Accord-489420

PATIENT
  Sex: Female

DRUGS (1)
  1. PACLITAXEL [Suspect]
     Active Substance: PACLITAXEL
     Indication: Ovarian cancer
     Route: 042

REACTIONS (5)
  - Dyspnoea [Unknown]
  - Somnolence [Unknown]
  - Back pain [Unknown]
  - Oxygen saturation decreased [Unknown]
  - Hyperglycaemia [Unknown]
